FAERS Safety Report 6359744-7 (Version None)
Quarter: 2009Q3

REPORT INFORMATION
  Report Type: 
  Country: None (occurrence: None)
  Receive Date: 20090917
  Receipt Date: 20090904
  Transmission Date: 20100115
  Serious: Yes (Hospitalization)
  Sender: FDA-Public Use
  Company Number: GB-ROCHE-655289

PATIENT
  Age: 22 Year
  Sex: Female

DRUGS (3)
  1. TAMIFLU [Suspect]
     Route: 065
  2. RELENZA [Concomitant]
     Route: 055
  3. RELENZA [Concomitant]
     Route: 042

REACTIONS (1)
  - INFLUENZA [None]
